FAERS Safety Report 6546392-9 (Version None)
Quarter: 2010Q1

REPORT INFORMATION
  Report Type: 
  Country: None (occurrence: None)
  Receive Date: 20100122
  Receipt Date: 20091103
  Transmission Date: 20100710
  Serious: Yes (Other)
  Sender: FDA-Public Use
  Company Number: US-SANOFI-AVENTIS-A03200905051

PATIENT
  Age: 71 Year
  Sex: Male
  Weight: 114.3 kg

DRUGS (12)
  1. MULTAQ [Suspect]
     Dosage: UNK
     Route: 048
     Dates: start: 20090701
  2. PRILOSEC [Concomitant]
     Route: 065
  3. KLOR-CON [Concomitant]
     Route: 065
  4. GABAPENTIN [Concomitant]
     Route: 065
  5. NIASPAN [Concomitant]
     Route: 065
  6. LOVASTATIN [Concomitant]
     Route: 065
  7. FUROSEMIDE [Concomitant]
     Route: 065
  8. GLYBURIDE [Concomitant]
     Route: 065
  9. METFORMIN [Concomitant]
     Route: 065
  10. COUMADIN [Concomitant]
     Route: 065
  11. METOPROLOL [Concomitant]
     Route: 065
  12. DILTIAZEM [Concomitant]
     Route: 065

REACTIONS (2)
  - ATRIAL FIBRILLATION [None]
  - CARDIAC FAILURE CONGESTIVE [None]
